FAERS Safety Report 9695853 (Version 1)
Quarter: 2013Q4

REPORT INFORMATION
  Report Type: Spontaneous
  Country: US (occurrence: None)
  Receive Date: 20131118
  Receipt Date: 20131118
  Transmission Date: 20140711
  Serious: No
  Sender: FDA-Public Use
  Company Number: None

PATIENT
  Age: 15 Year
  Sex: 0
  Weight: 86.18 kg

DRUGS (1)
  1. DEXTROAMP-AMPHET ER [Suspect]
     Indication: ATTENTION DEFICIT/HYPERACTIVITY DISORDER
     Route: 048
     Dates: start: 20130823, end: 20131115

REACTIONS (4)
  - Product substitution issue [None]
  - Disturbance in attention [None]
  - Nausea [None]
  - Drug effect decreased [None]
